FAERS Safety Report 17499301 (Version 1)
Quarter: 2020Q1

REPORT INFORMATION
  Report Type: Spontaneous
  Country: US (occurrence: US)
  Receive Date: 20200304
  Receipt Date: 20200304
  Transmission Date: 20200409
  Serious: No
  Sender: FDA-Public Use
  Company Number: US-BAUSCH-BL-2020-004877

PATIENT
  Age: 56 Year
  Sex: Male
  Weight: 74.91 kg

DRUGS (2)
  1. NORITATE [Suspect]
     Active Substance: METRONIDAZOLE
     Indication: ROSACEA
     Dosage: ON HIS CHEEKS AND FOREHEAD
     Route: 061
     Dates: start: 201911
  2. ATENOLOL. [Concomitant]
     Active Substance: ATENOLOL
     Indication: PRODUCT USED FOR UNKNOWN INDICATION
     Route: 048

REACTIONS (7)
  - Erythema [Recovered/Resolved]
  - Application site acne [Recovered/Resolved]
  - Product container issue [Unknown]
  - Incorrect dose administered [Unknown]
  - Application site pain [Unknown]
  - Product quality issue [Unknown]
  - Product residue present [Unknown]

NARRATIVE: CASE EVENT DATE: 2019
